FAERS Safety Report 17851279 (Version 1)
Quarter: 2020Q2

REPORT INFORMATION
  Report Type: Spontaneous
  Country: ES (occurrence: ES)
  Receive Date: 20200602
  Receipt Date: 20200602
  Transmission Date: 20200714
  Serious: Yes (Other)
  Sender: FDA-Public Use
  Company Number: ES-ELI_LILLY_AND_COMPANY-ES202005008837

PATIENT
  Sex: Female

DRUGS (2)
  1. RAMUCIRUMAB [Suspect]
     Active Substance: RAMUCIRUMAB
     Indication: GASTRIC CANCER
     Dosage: 400 MG, UNKNOWN
     Route: 041
     Dates: start: 20200309, end: 20200427
  2. PACLITAXEL. [Concomitant]
     Active Substance: PACLITAXEL
     Indication: GASTRIC CANCER
     Dosage: 71 MG, UNKNOWN
     Route: 042

REACTIONS (1)
  - Nephropathy [Recovering/Resolving]

NARRATIVE: CASE EVENT DATE: 20200327
